FAERS Safety Report 7588406-3 (Version None)
Quarter: 2011Q3

REPORT INFORMATION
  Report Type: 
  Country: None (occurrence: None)
  Receive Date: 20110705
  Receipt Date: 20110621
  Transmission Date: 20111222
  Serious: Yes (Hospitalization)
  Sender: FDA-Public Use
  Company Number: US-RANBAXY-2011US-45644

PATIENT

DRUGS (4)
  1. ZOLOFT [Suspect]
     Indication: BIPOLAR DISORDER
     Dosage: 200 MG DAILY
     Route: 065
     Dates: start: 20050101
  2. HYDROXYZINE HCL [Suspect]
     Indication: ANXIETY
     Dosage: 50 MG, UNK
     Route: 048
     Dates: start: 20100101
  3. SERTRALINE HYDROCHLORIDE [Suspect]
     Indication: BIPOLAR DISORDER
     Dosage: 200 MG, DAILY
     Route: 065
  4. AMBIEN [Suspect]
     Indication: INSOMNIA
     Dosage: UNK
     Route: 065

REACTIONS (7)
  - PERIORBITAL HAEMATOMA [None]
  - PERIPHERAL NERVE INJURY [None]
  - LOSS OF CONSCIOUSNESS [None]
  - LACERATION [None]
  - HYPOTONIA [None]
  - SCAR [None]
  - BLOOD POTASSIUM DECREASED [None]
